FAERS Safety Report 11222060 (Version 2)
Quarter: 2015Q3

REPORT INFORMATION
  Report Type: Report from Study
  Country: US (occurrence: US)
  Receive Date: 20150626
  Receipt Date: 20150713
  Transmission Date: 20151125
  Serious: Yes (Hospitalization)
  Sender: FDA-Public Use
  Company Number: US-ACTELION-A-US2015-119631

PATIENT
  Age: 27 Year
  Sex: Female

DRUGS (4)
  1. VELETRI [Suspect]
     Active Substance: EPOPROSTENOL
     Indication: PULMONARY ARTERIAL HYPERTENSION
     Dosage: 5 NG/KG, PER MIN
     Route: 042
     Dates: start: 20150529
  2. VELETRI [Suspect]
     Active Substance: EPOPROSTENOL
     Dosage: 7 NG/KG, PER MIN
     Route: 042
     Dates: start: 20150529
  3. XARELTO [Concomitant]
     Active Substance: RIVAROXABAN
  4. LETAIRIS [Concomitant]
     Active Substance: AMBRISENTAN

REACTIONS (10)
  - Catheter site erythema [Recovering/Resolving]
  - Catheter site rash [Recovering/Resolving]
  - Staphylococcal infection [Unknown]
  - Dyspepsia [Unknown]
  - Catheter site inflammation [Recovering/Resolving]
  - Syncope [Unknown]
  - Pulmonary arterial hypertension [Unknown]
  - Catheter site discharge [Unknown]
  - Dermatitis contact [Recovering/Resolving]
  - Catheter placement [Unknown]

NARRATIVE: CASE EVENT DATE: 20150609
